FAERS Safety Report 16303761 (Version 2)
Quarter: 2020Q2

REPORT INFORMATION
  Report Type: Spontaneous
  Country: US (occurrence: US)
  Receive Date: 20190513
  Receipt Date: 20200406
  Transmission Date: 20200713
  Serious: Yes (Other)
  Sender: FDA-Public Use
  Company Number: US-GLAXOSMITHKLINE-US2019GSK083564

PATIENT
  Sex: Female

DRUGS (1)
  1. PREVACID [Suspect]
     Active Substance: LANSOPRAZOLE
     Indication: GASTROOESOPHAGEAL REFLUX DISEASE
     Dosage: 15 MG, QD
     Route: 065
     Dates: start: 199506, end: 199509

REACTIONS (6)
  - Chronic kidney disease [Unknown]
  - Urinary retention [Unknown]
  - Renal cyst [Unknown]
  - Renal pain [Unknown]
  - Kidney infection [Unknown]
  - Renal impairment [Unknown]
